FAERS Safety Report 8236541-9 (Version None)
Quarter: 2012Q1

REPORT INFORMATION
  Report Type: 
  Country: None (occurrence: None)
  Receive Date: 20120327
  Receipt Date: 20120320
  Transmission Date: 20120608
  Serious: Yes (Hospitalization)
  Sender: FDA-Public Use
  Company Number: US-BAYER-2011-105674

PATIENT
  Age: 18 Year
  Sex: Female
  Weight: 58.957 kg

DRUGS (9)
  1. YAZ [Suspect]
  2. PREVACID [Concomitant]
     Dosage: 30 MG, QD
     Route: 048
     Dates: start: 20070514
  3. TYLENOL [Concomitant]
     Indication: HEADACHE
  4. CALCIUM CARBONATE [Concomitant]
     Dosage: UNK
     Route: 048
     Dates: start: 20070719
  5. YAZ [Suspect]
     Indication: PREMENSTRUAL SYNDROME
  6. ROCEPHIN [Concomitant]
     Indication: URINARY TRACT INFECTION
     Dosage: 1 G, UNK
     Route: 030
     Dates: start: 20070517
  7. HYDROCODONE BITARTRATE AND ACETAMINOPHEN [Concomitant]
     Indication: PAIN
     Dosage: 7.5/500
     Route: 048
     Dates: start: 20070601
  8. YAZ [Suspect]
     Indication: CONTRACEPTION
     Dosage: UNK
     Dates: start: 20070101, end: 20070101
  9. REPLIVA 21/7[ [Concomitant]
     Dosage: UNK
     Route: 048
     Dates: start: 20070424

REACTIONS (6)
  - GENERAL PHYSICAL HEALTH DETERIORATION [None]
  - EMOTIONAL DISTRESS [None]
  - PULMONARY EMBOLISM [None]
  - PAIN [None]
  - FEAR [None]
  - ANXIETY [None]
